FAERS Safety Report 23522958 (Version 1)
Quarter: 2024Q1

REPORT INFORMATION
  Report Type: Spontaneous
  Country: US (occurrence: None)
  Receive Date: 20240214
  Receipt Date: 20240214
  Transmission Date: 20240410
  Serious: Yes (Hospitalization)
  Sender: FDA-Public Use
  Company Number: None

PATIENT
  Age: 84 Year
  Sex: Male
  Weight: 82.5 kg

DRUGS (1)
  1. PEMBROLIZUMAB [Suspect]
     Active Substance: PEMBROLIZUMAB
     Dates: end: 20231214

REACTIONS (4)
  - Pneumonitis [None]
  - Pneumocystis jirovecii infection [None]
  - Blood glucose increased [None]
  - Pneumonia [None]

NARRATIVE: CASE EVENT DATE: 20240124
